FAERS Safety Report 6923991-3 (Version None)
Quarter: 2010Q3

REPORT INFORMATION
  Report Type: 
  Country: None (occurrence: None)
  Receive Date: 20100813
  Receipt Date: 20100730
  Transmission Date: 20110219
  Serious: Yes (Other)
  Sender: FDA-Public Use
  Company Number: DE-GENENTECH-305297

PATIENT
  Sex: Male

DRUGS (13)
  1. RANIBIZUMAB [Suspect]
     Indication: MACULAR DEGENERATION
     Dosage: UNK
     Route: 031
     Dates: start: 20090608
  2. RANIBIZUMAB [Suspect]
     Dosage: UNK
     Route: 031
     Dates: start: 20090703
  3. RANIBIZUMAB [Suspect]
     Dosage: UNK
     Route: 031
     Dates: start: 20090731
  4. ORTHOMOL PRODUCT NOS [Concomitant]
     Indication: PRODUCT USED FOR UNKNOWN INDICATION
     Dosage: UNK
     Dates: start: 20090901, end: 20090901
  5. DEXAMETHASONE [Concomitant]
     Indication: PRODUCT USED FOR UNKNOWN INDICATION
     Dosage: UNK
     Dates: start: 20091201, end: 20091201
  6. LOTEMAX [Concomitant]
     Indication: PRODUCT USED FOR UNKNOWN INDICATION
     Dosage: UNK
     Dates: start: 20091201, end: 20091201
  7. VOLTAREN [Concomitant]
     Indication: PRODUCT USED FOR UNKNOWN INDICATION
     Dosage: UNK
     Dates: start: 20100101, end: 20100101
  8. VOLTAREN [Concomitant]
     Dosage: UNK
     Dates: start: 20100301, end: 20100301
  9. FLOXAL [Concomitant]
     Indication: PRODUCT USED FOR UNKNOWN INDICATION
     Dosage: UNK
     Dates: start: 20100101, end: 20100101
  10. FLOXAL [Concomitant]
     Dosage: UNK
     Dates: start: 20100301, end: 20100301
  11. ACETAZOLAMIDE [Concomitant]
     Indication: PRODUCT USED FOR UNKNOWN INDICATION
     Dosage: UNK
     Dates: start: 20091201, end: 20091201
  12. ACETAZOLAMIDE [Concomitant]
     Dosage: UNK
     Dates: start: 20100101, end: 20100101
  13. ACETAZOLAMIDE [Concomitant]
     Dosage: UNK
     Dates: start: 20100201, end: 20100201

REACTIONS (3)
  - INTRAOCULAR PRESSURE INCREASED [None]
  - METAMORPHOPSIA [None]
  - RETINAL HAEMORRHAGE [None]
